FAERS Safety Report 15121697 (Version 1)
Quarter: 2018Q3

REPORT INFORMATION
  Report Type: Spontaneous
  Country: US (occurrence: US)
  Receive Date: 20180613
  Receipt Date: 20180613
  Transmission Date: 20181010
  Serious: Yes (Hospitalization)
  Sender: FDA-Public Use
  Company Number: None

PATIENT
  Age: 66 Year
  Sex: Female

DRUGS (12)
  1. BUPROPION. [Concomitant]
     Active Substance: BUPROPION
  2. CLOPIDOGREL [Concomitant]
     Active Substance: CLOPIDOGREL BISULFATE
  3. RANITIDINE. [Concomitant]
     Active Substance: RANITIDINE
  4. SIMPONI [Suspect]
     Active Substance: GOLIMUMAB
     Dosage: EVERY 28 DAYS
     Route: 058
  5. FLEXBUMIN [Concomitant]
     Active Substance: ALBUMIN HUMAN
  6. BACTRIM [Concomitant]
     Active Substance: SULFAMETHOXAZOLE\TRIMETHOPRIM
  7. ESOMEPRA [Concomitant]
     Active Substance: ESOMEPRAZOLE
  8. OLMESA MEDOX [Concomitant]
  9. METOPROLOL. [Concomitant]
     Active Substance: METOPROLOL
  10. PROTONIX [Concomitant]
     Active Substance: PANTOPRAZOLE SODIUM
  11. AZATHIOPRINE. [Concomitant]
     Active Substance: AZATHIOPRINE
  12. EZXETIMIBE [Concomitant]

REACTIONS (2)
  - Drug dose omission [None]
  - Hip arthroplasty [None]

NARRATIVE: CASE EVENT DATE: 20180522
